FAERS Safety Report 5304302-6 (Version None)
Quarter: 2007Q2

REPORT INFORMATION
  Report Type: 
  Country: None (occurrence: None)
  Receive Date: 20070423
  Receipt Date: 20070412
  Transmission Date: 20071010
  Serious: Yes (Other)
  Sender: FDA-Public Use
  Company Number: PHEH2007US05082

PATIENT
  Age: 54 Year
  Sex: Female

DRUGS (1)
  1. ZELNORM [Suspect]
     Dosage: 6 MG, BID
     Route: 048
     Dates: end: 20060101

REACTIONS (4)
  - CHEST PAIN [None]
  - DIABETES MELLITUS [None]
  - DIARRHOEA [None]
  - MYOCARDIAL INFARCTION [None]
